FAERS Safety Report 13051929 (Version 2)
Quarter: 2017Q1

REPORT INFORMATION
  Report Type: Spontaneous
  Country: US (occurrence: US)
  Receive Date: 20161221
  Receipt Date: 20170201
  Transmission Date: 20170428
  Serious: Yes (Hospitalization, Other)
  Sender: FDA-Public Use
  Company Number: US-SAOL THERAPEUTICS-2016SAO01255

PATIENT
  Age: 61 Year
  Sex: Female
  Weight: 109.75 kg

DRUGS (20)
  1. BACLOFEN. [Suspect]
     Active Substance: BACLOFEN
     Route: 048
  2. PROVIGIL [Concomitant]
     Active Substance: MODAFINIL
  3. DULCOLAX NOS [Concomitant]
     Active Substance: BISACODYL OR DOCUSATE SODIUM
  4. MIRALAX [Concomitant]
     Active Substance: POLYETHYLENE GLYCOL 3350
  5. VITAMIN D [Concomitant]
     Active Substance: CHOLECALCIFEROL
  6. LASIX [Concomitant]
     Active Substance: FUROSEMIDE
  7. MULTIVITAMIN [Concomitant]
     Active Substance: VITAMINS
  8. K-DUR [Concomitant]
     Active Substance: POTASSIUM CHLORIDE
  9. FLAX SEED [Concomitant]
     Active Substance: FLAX SEED
  10. LIORESAL [Suspect]
     Active Substance: BACLOFEN
     Indication: MULTIPLE SCLEROSIS
     Dosage: 540.5 ?G, \DAY
     Route: 037
     Dates: start: 20031029
  11. SYNTHROID [Concomitant]
     Active Substance: LEVOTHYROXINE SODIUM
  12. CALCIUM [Concomitant]
     Active Substance: CALCIUM
  13. CRANBERRY. [Concomitant]
     Active Substance: CRANBERRY
  14. ZOCOR [Concomitant]
     Active Substance: SIMVASTATIN
  15. PRINIVIL [Concomitant]
     Active Substance: LISINOPRIL
  16. OMEGA-3 ACIDS [Concomitant]
     Active Substance: OMEGA-3 FATTY ACIDS
  17. COREG [Concomitant]
     Active Substance: CARVEDILOL
  18. PRILOSEC [Concomitant]
     Active Substance: OMEPRAZOLE MAGNESIUM
  19. ELAVIL [Concomitant]
     Active Substance: AMITRIPTYLINE HYDROCHLORIDE
  20. MILK THISTLE EXTRACT [Concomitant]

REACTIONS (9)
  - Drug withdrawal syndrome [Recovered/Resolved]
  - Overdose [Recovered/Resolved]
  - Mental status changes [Recovered/Resolved]
  - Pneumonia staphylococcal [None]
  - Muscle spasticity [Recovered/Resolved]
  - Malaise [Recovered/Resolved]
  - Urinary tract infection [Unknown]
  - Fall [Recovered/Resolved]
  - Device dislocation [Recovered/Resolved]

NARRATIVE: CASE EVENT DATE: 2013
